FAERS Safety Report 9299849 (Version 1)
Quarter: 2012Q4

REPORT INFORMATION
  Report Type: Spontaneous
  Country: US (occurrence: None)
  Receive Date: 20121109
  Receipt Date: 20121109
  Transmission Date: 20130627
  Serious: Yes (Hospitalization)
  Sender: FDA-Public Use
  Company Number: DKLU1085566

PATIENT
  Age: 8 Year
  Sex: Male
  Weight: 29.8 kg

DRUGS (13)
  1. SABRIL [Suspect]
     Indication: CONVULSION
     Route: 048
     Dates: start: 20111228
  2. SABRIL [Suspect]
     Indication: CONVULSION
     Route: 048
     Dates: start: 20120214, end: 20120731
  3. SABRIL [Suspect]
     Indication: CONVULSION
     Route: 048
     Dates: start: 20120730, end: 20120802
  4. SABRIL [Suspect]
     Indication: CONVULSION
     Dates: start: 20121019
  5. SABRIL [Suspect]
     Indication: CONVULSION
     Route: 048
     Dates: start: 20121019
  6. ONFI (CLOBAZAM) [Concomitant]
  7. LAM ICTAL (LAMOTRIGINE) [Concomitant]
  8. TOPAMAX (TOPIRAMATE) [Concomitant]
  9. MIRALAX (MACROGOL) [Concomitant]
  10. FLOVENT (FLUTICASONE PROPIONATE) [Concomitant]
  11. PROAIR HFA (SALBUTAMOL SULFATE) [Concomitant]
  12. PROVENTIL (SALBUTAMOL) [Concomitant]
  13. PHENOBARBITAL (PHENOBARBITAL) [Concomitant]

REACTIONS (7)
  - Oxygen saturation decreased [None]
  - Electroencephalogram abnormal [None]
  - Grand mal convulsion [None]
  - Muscle spasms [None]
  - Rash erythematous [None]
  - Dysuria [None]
  - Urinary sediment present [None]
